FAERS Safety Report 6026147-4 (Version None)
Quarter: 2008Q4

REPORT INFORMATION
  Report Type: 
  Country: None (occurrence: None)
  Receive Date: 20081230
  Receipt Date: 20080107
  Transmission Date: 20090506
  Serious: No
  Sender: FDA-Public Use
  Company Number: US025210

PATIENT
  Sex: Female

DRUGS (2)
  1. FENTORA [Suspect]
     Indication: MIGRAINE
     Dosage: 200 UG BUCCAL
     Route: 002
  2. FENTANYL-100 [Concomitant]

REACTIONS (3)
  - CONTRAINDICATION TO MEDICAL TREATMENT [None]
  - DRUG PRESCRIBING ERROR [None]
  - PRODUCT QUALITY ISSUE [None]
